FAERS Safety Report 20810662 (Version 2)
Quarter: 2022Q2

REPORT INFORMATION
  Report Type: Report from Study
  Country: US (occurrence: US)
  Receive Date: 20220510
  Receipt Date: 20220518
  Transmission Date: 20220721
  Serious: No
  Sender: FDA-Public Use
  Company Number: US-SUNOVION-2022SUN001443

PATIENT
  Age: 64 Year
  Sex: Male

DRUGS (2)
  1. KYNMOBI [Suspect]
     Active Substance: APOMORPHINE HYDROCHLORIDE
     Dosage: 20 MG
     Route: 060
     Dates: start: 20220503
  2. KYNMOBI [Suspect]
     Active Substance: APOMORPHINE HYDROCHLORIDE
     Dosage: 30 MG
     Route: 060
     Dates: start: 20220427

REACTIONS (2)
  - Blood pressure decreased [Unknown]
  - Orthostatic hypotension [Unknown]

NARRATIVE: CASE EVENT DATE: 20220503
